FAERS Safety Report 4876861-9 (Version None)
Quarter: 2005Q4

REPORT INFORMATION
  Report Type: 
  Country: None (occurrence: None)
  Receive Date: 20051206
  Receipt Date: 20050801
  Transmission Date: 20060501
  Serious: No
  Sender: FDA-Public Use
  Company Number: USA0508104269

PATIENT
  Sex: Female

DRUGS (1)
  1. CYMBALTA [Suspect]
     Dosage: 30 MG
     Dates: start: 20050728, end: 20050730

REACTIONS (5)
  - CONSTIPATION [None]
  - DIFFICULTY IN WALKING [None]
  - DRY MOUTH [None]
  - INSOMNIA [None]
  - TREMOR [None]
